FAERS Safety Report 5832564-5 (Version None)
Quarter: 2008Q3

REPORT INFORMATION
  Report Type: 
  Country: None (occurrence: None)
  Receive Date: 20080804
  Receipt Date: 20080726
  Transmission Date: 20090109
  Serious: Yes (Hospitalization, Other)
  Sender: FDA-Public Use
  Company Number: US-AMGEN-QUU297344

PATIENT
  Sex: Female

DRUGS (3)
  1. ENBREL [Suspect]
     Indication: RHEUMATOID ARTHRITIS
     Route: 058
     Dates: start: 20060818
  2. METHOTREXATE [Concomitant]
     Route: 048
     Dates: start: 20060815
  3. PLAQUENIL [Concomitant]
     Route: 048
     Dates: start: 20060815

REACTIONS (3)
  - ALOPECIA [None]
  - FALL [None]
  - JOINT INJURY [None]
